FAERS Safety Report 7820996-5 (Version None)
Quarter: 2011Q4

REPORT INFORMATION
  Report Type: 
  Country: None (occurrence: None)
  Receive Date: 20111018
  Receipt Date: 20111013
  Transmission Date: 20120403
  Serious: Yes (Hospitalization)
  Sender: FDA-Public Use
  Company Number: FR-KINGPHARMUSA00001-K201101225

PATIENT
  Age: 90 Year
  Sex: Female

DRUGS (10)
  1. ASPIRIN [Concomitant]
  2. ALTACE [Suspect]
     Indication: HYPERTENSION
     Dosage: 5 MG, QD
     Route: 048
     Dates: start: 20060101, end: 20110421
  3. ISOSORBIDE MONONITRATE [Concomitant]
     Dosage: 40 MG, UNK
     Route: 048
  4. LASIX [Concomitant]
     Dosage: 25 MG, UNK
  5. AMLODIPINE [Concomitant]
     Dosage: 10 MG, UNK
     Route: 048
  6. ESOMEPRAZOLE SODIUM [Concomitant]
     Dosage: 40 MG, UNK
     Route: 048
  7. POTASSIUM CHLORIDE [Suspect]
     Indication: HYPERTENSION
     Dosage: 600 MG, QD
     Route: 048
     Dates: start: 20110330, end: 20110421
  8. ALDACTONE [Suspect]
     Indication: HYPERTENSION
     Dosage: 25 MG, QD
     Route: 048
     Dates: start: 20110330, end: 20110421
  9. ZOLPIDEM [Concomitant]
  10. LEXOTAN [Concomitant]

REACTIONS (2)
  - HYPERKALAEMIA [None]
  - SUPRAVENTRICULAR EXTRASYSTOLES [None]
